FAERS Safety Report 7080694 (Version 2)
Quarter: 2020Q3

REPORT INFORMATION
  Report Type: Report from Study
  Country: PL (occurrence: PL)
  Receive Date: 20090813
  Receipt Date: 20090902
  Transmission Date: 20201104
  Serious: Yes (Hospitalization)
  Sender: FDA-Public Use
  Company Number: PL-WYE-H10514809

PATIENT
  Age: 65 Year
  Sex: Female
  Weight: 73 kg

DRUGS (9)
  1. ALLOPURINOL. [Concomitant]
     Active Substance: ALLOPURINOL
     Indication: PROPHYLAXIS
     Dosage: UNKNOWN
     Dates: start: 20090424
  2. INTERFERON ALFA NOS [Suspect]
     Active Substance: INTERFERON ALFA-2A OR INTERFERON ALFA-2B
     Indication: RENAL CELL CARCINOMA
     Dosage: 9 MILLION UNIT (MU) THREE TIMES WEEKLY (TIW)
     Route: 058
     Dates: start: 20090403
  3. LACIDIPINE [Concomitant]
     Active Substance: LACIDIPINE
     Indication: HYPERTENSION
     Dosage: UNKNOWN
     Dates: start: 2003
  4. BEVACIZUMAB. [Suspect]
     Active Substance: BEVACIZUMAB
     Indication: RENAL CELL CARCINOMA
     Route: 042
     Dates: start: 20090403
  5. ORNITHINE ASPARTATE [Concomitant]
     Active Substance: ORNITHINE ASPARTATE
     Indication: ALANINE AMINOTRANSFERASE INCREASED
  6. CAPTOPRIL. [Concomitant]
     Active Substance: CAPTOPRIL
     Indication: HYPERTENSION
     Dosage: UNKNOWN
     Dates: start: 2003
  7. ORNITHINE ASPARTATE [Concomitant]
     Active Substance: ORNITHINE ASPARTATE
     Indication: ASPARTATE AMINOTRANSFERASE INCREASED
     Dosage: UNKNOWN
     Dates: start: 20090709
  8. PHOSPHOLIPIDS [Concomitant]
     Indication: ALANINE AMINOTRANSFERASE INCREASED
     Dosage: UNKNOWN
     Dates: start: 20090709
  9. PHOSPHOLIPIDS [Concomitant]
     Indication: ASPARTATE AMINOTRANSFERASE INCREASED

REACTIONS (1)
  - Nasal septum disorder [Recovered/Resolved]

NARRATIVE: CASE EVENT DATE: 20090730
